FAERS Safety Report 23093862 (Version 1)
Quarter: 2023Q4

REPORT INFORMATION
  Report Type: Report from Study
  Country: US (occurrence: US)
  Receive Date: 20231023
  Receipt Date: 20231023
  Transmission Date: 20240110
  Serious: No
  Sender: FDA-Public Use
  Company Number: US-002147023-NVSC2023US221438

PATIENT
  Age: 71 Year
  Sex: Male

DRUGS (2)
  1. LEQVIO [Suspect]
     Active Substance: INCLISIRAN SODIUM
     Indication: Product used for unknown indication
     Dosage: UNK (12 WEEKS)
     Route: 065
     Dates: start: 20230913
  2. BRILINTA [Concomitant]
     Active Substance: TICAGRELOR
     Indication: Coronary artery occlusion
     Dosage: UNK
     Route: 048

REACTIONS (10)
  - Fatigue [Not Recovered/Not Resolved]
  - Apathy [Unknown]
  - Depression [Not Recovered/Not Resolved]
  - Headache [Unknown]
  - Anxiety [Not Recovered/Not Resolved]
  - Back pain [Unknown]
  - Feeling abnormal [Unknown]
  - Dyspnoea [Unknown]
  - Insomnia [Unknown]
  - Pain [Not Recovered/Not Resolved]

NARRATIVE: CASE EVENT DATE: 20230920
